FAERS Safety Report 8183713-8 (Version None)
Quarter: 2012Q1

REPORT INFORMATION
  Report Type: 
  Country: None (occurrence: None)
  Receive Date: 20120305
  Receipt Date: 20120229
  Transmission Date: 20120608
  Serious: Yes (Death, Hospitalization)
  Sender: FDA-Public Use
  Company Number: PHEH2011US008801

PATIENT
  Sex: Female

DRUGS (1)
  1. GLEEVEC [Suspect]
     Indication: SKIN CANCER
     Dosage: 300 MG, QD
     Route: 048

REACTIONS (3)
  - DEATH [None]
  - VOMITING [None]
  - ANXIETY [None]
